FAERS Safety Report 11179465 (Version 1)
Quarter: 2015Q2

REPORT INFORMATION
  Report Type: Report from Study
  Country: CL (occurrence: CL)
  Receive Date: 20150611
  Receipt Date: 20150611
  Transmission Date: 20150821
  Serious: Yes (Other)
  Sender: FDA-Public Use
  Company Number: CL-ROCHE-1592143

PATIENT
  Age: 35 Year
  Sex: Female

DRUGS (5)
  1. XELODA [Suspect]
     Active Substance: CAPECITABINE
     Indication: COLORECTAL CANCER
     Dosage: 14 DAYS PER CYCLE
     Route: 048
     Dates: start: 20150414, end: 20150420
  2. CLONAZEPAM. [Concomitant]
     Active Substance: CLONAZEPAM
     Route: 065
  3. VIADIL (CHILE) [Concomitant]
     Indication: PALLIATIVE CARE
     Route: 048
     Dates: start: 20150420
  4. TRAMADOL [Concomitant]
     Active Substance: TRAMADOL
     Indication: PALLIATIVE CARE
     Route: 048
     Dates: start: 20150420
  5. OMEPRAZOLE. [Concomitant]
     Active Substance: OMEPRAZOLE

REACTIONS (5)
  - Infection [Recovered/Resolved]
  - Immune system disorder [Recovered/Resolved]
  - Pain [Unknown]
  - Pyrexia [Unknown]
  - Metastases to liver [Not Recovered/Not Resolved]

NARRATIVE: CASE EVENT DATE: 20150527
